FAERS Safety Report 26118525 (Version 1)
Quarter: 2025Q4

REPORT INFORMATION
  Report Type: Spontaneous
  Country: US (occurrence: US)
  Receive Date: 20251203
  Receipt Date: 20251203
  Transmission Date: 20260118
  Serious: No
  Sender: SERVIER
  Company Number: US-SERVIER-S25017083

PATIENT

DRUGS (1)
  1. VORANIGO [Suspect]
     Active Substance: VORASIDENIB
     Indication: Astrocytoma
     Dosage: UNK, UNKNOWN
     Route: 048

REACTIONS (1)
  - Liver function test increased [Unknown]
